FAERS Safety Report 18448914 (Version 2)
Quarter: 2021Q2

REPORT INFORMATION
  Report Type: Spontaneous
  Country: US (occurrence: US)
  Receive Date: 20201031
  Receipt Date: 20210525
  Transmission Date: 20210717
  Serious: No
  Sender: FDA-Public Use
  Company Number: US-PURDUE PHARMA-USA-2020-0151948

PATIENT
  Sex: Female

DRUGS (5)
  1. FENTANYL. [Suspect]
     Active Substance: FENTANYL
     Indication: PAIN
     Dosage: UNK
     Route: 062
     Dates: start: 2007
  2. OPANA [Suspect]
     Active Substance: OXYMORPHONE HYDROCHLORIDE
     Indication: PAIN
     Route: 062
  3. OXYCODONE HYDROCHLORIDE (SIMILAR TO NDA 22?272) [Suspect]
     Active Substance: OXYCODONE HYDROCHLORIDE
     Indication: NEURALGIA
  4. OXYCONTIN [Suspect]
     Active Substance: OXYCODONE HYDROCHLORIDE
     Indication: NEURALGIA
     Dosage: UNK
     Route: 048
  5. OXYCODONE HYDROCHLORIDE (SIMILAR TO NDA 22?272) [Suspect]
     Active Substance: OXYCODONE HYDROCHLORIDE
     Indication: BREAKTHROUGH PAIN
     Dosage: UNK
     Route: 048
     Dates: start: 2007

REACTIONS (12)
  - Somnolence [Unknown]
  - Constipation [Unknown]
  - Folliculitis [Unknown]
  - Hyperhidrosis [Unknown]
  - Dry mouth [Unknown]
  - Application site laceration [Unknown]
  - Feeling abnormal [Unknown]
  - Amnesia [Unknown]
  - Anxiety [Unknown]
  - Thinking abnormal [Unknown]
  - Panic attack [Unknown]
  - Depression [Unknown]
